FAERS Safety Report 9214521 (Version 1)
Quarter: 2013Q1

REPORT INFORMATION
  Report Type: Spontaneous
  Country: US (occurrence: None)
  Receive Date: 20120827
  Receipt Date: 20120827
  Transmission Date: 20140127
  Serious: No
  Sender: FDA-Public Use
  Company Number: 356494

PATIENT
  Age: 56 Year
  Sex: Male

DRUGS (3)
  1. VICTOZA (LIRAGLUTIDE) SOLUTION FOR INJECTION, 6MG/ML [Suspect]
     Indication: TYPE 2 DIABETES MELLITUS
     Route: 058
     Dates: start: 20120714
  2. METFORMIN (METFORMIN) [Concomitant]
  3. LANTUS (INSULINE GLARGINE) [Concomitant]

REACTIONS (5)
  - Muscle spasms [None]
  - Decreased appetite [None]
  - Nausea [None]
  - Diarrhoea [None]
  - Blood glucose increased [None]
